FAERS Safety Report 7931001-4 (Version None)
Quarter: 2011Q4

REPORT INFORMATION
  Report Type: 
  Country: None (occurrence: None)
  Receive Date: 20111121
  Receipt Date: 20111117
  Transmission Date: 20120403
  Serious: Yes (Death)
  Sender: FDA-Public Use
  Company Number: TR-JNJFOC-20111108228

PATIENT
  Age: 64 Year
  Sex: Female

DRUGS (3)
  1. DURAGESIC-100 [Suspect]
     Indication: PAIN
     Route: 062
     Dates: start: 20100101
  2. COUMARIN [Suspect]
     Indication: DEEP VEIN THROMBOSIS
     Route: 065
  3. HEPARIN [Suspect]
     Indication: DEEP VEIN THROMBOSIS
     Route: 065

REACTIONS (2)
  - HAEMORRHAGE [None]
  - DEEP VEIN THROMBOSIS [None]
